FAERS Safety Report 9564209 (Version 1)
Quarter: 2013Q3

REPORT INFORMATION
  Report Type: Spontaneous
  Country: ES (occurrence: ES)
  Receive Date: 20130930
  Receipt Date: 20130930
  Transmission Date: 20140515
  Serious: Yes (Hospitalization)
  Sender: FDA-Public Use
  Company Number: ES-ROCHE-1281056

PATIENT
  Age: 46 Year
  Sex: Female

DRUGS (7)
  1. RIVOTRIL [Suspect]
     Indication: SUICIDE ATTEMPT
     Route: 048
     Dates: start: 20121212, end: 20121212
  2. REXER [Suspect]
     Indication: SUICIDE ATTEMPT
     Route: 048
     Dates: start: 20121212, end: 20121212
  3. QUETIAPINE [Suspect]
     Indication: SUICIDE ATTEMPT
     Route: 048
     Dates: start: 20121212, end: 20121212
  4. QUETIAPINE [Concomitant]
     Indication: PERSONALITY DISORDER
     Route: 048
     Dates: start: 2008, end: 20121212
  5. REXER [Concomitant]
     Indication: DEPRESSION
     Route: 048
     Dates: start: 2008, end: 20121212
  6. RIVOTRIL [Concomitant]
     Indication: ANXIETY
     Route: 048
     Dates: start: 2008, end: 20121212
  7. ENALAPRIL [Concomitant]
     Indication: HYPERTENSION
     Dosage: ENALAPRIL 20 1-0-1
     Route: 065

REACTIONS (2)
  - Rhabdomyolysis [Recovered/Resolved]
  - Depressed level of consciousness [Recovered/Resolved]
